FAERS Safety Report 22247129 (Version 1)
Quarter: 2023Q2

REPORT INFORMATION
  Report Type: Report from Study
  Country: US (occurrence: US)
  Receive Date: 20230424
  Receipt Date: 20230424
  Transmission Date: 20230722
  Serious: Yes (Other)
  Sender: FDA-Public Use
  Company Number: US-JNJFOC-20230438277

PATIENT
  Age: 81 Year
  Sex: Male

DRUGS (1)
  1. ERLEADA [Suspect]
     Active Substance: APALUTAMIDE
     Indication: Product used for unknown indication
     Dosage: PATIENT TOOK LAST PILL ON 03-FEB-2023 WHILE WAITING ON APPROVAL FOR THE PROGRAM AND RUN OUT OF MEDIC
     Route: 048
     Dates: end: 20230203

REACTIONS (3)
  - Amnesia [Recovering/Resolving]
  - Muscle atrophy [Recovering/Resolving]
  - Abnormal loss of weight [Recovering/Resolving]

NARRATIVE: CASE EVENT DATE: 20230417
